FAERS Safety Report 25758796 (Version 1)
Quarter: 2025Q3

REPORT INFORMATION
  Report Type: Spontaneous
  Country: EU (occurrence: None)
  Receive Date: 20250904
  Receipt Date: 20250904
  Transmission Date: 20251021
  Serious: Yes (Other)
  Sender: ADIENNE PHARMA & BIOTECH
  Company Number: EU-ADIENNEP-2025AD000655

PATIENT
  Sex: Male

DRUGS (4)
  1. THIOTEPA [Suspect]
     Active Substance: THIOTEPA
     Indication: Allogenic stem cell transplantation
     Dates: start: 2022, end: 2022
  2. BUSULFAN [Suspect]
     Active Substance: BUSULFAN
     Indication: Allogenic stem cell transplantation
     Dates: start: 2022, end: 2022
  3. FLUDARABINE [Suspect]
     Active Substance: FLUDARABINE PHOSPHATE
     Indication: Allogenic stem cell transplantation
     Dates: start: 2022, end: 2022
  4. CYCLOPHOSPHAMIDE [Suspect]
     Active Substance: CYCLOPHOSPHAMIDE
     Indication: Allogenic stem cell transplantation
     Dates: start: 2022

REACTIONS (3)
  - Acute graft versus host disease in skin [Unknown]
  - Viral haemorrhagic cystitis [Unknown]
  - BK virus infection [Unknown]
